FAERS Safety Report 8993215 (Version 2)
Quarter: 2013Q1

REPORT INFORMATION
  Report Type: Spontaneous
  Country: US (occurrence: US)
  Receive Date: 20130102
  Receipt Date: 20130118
  Transmission Date: 20140127
  Serious: Yes (Other)
  Sender: FDA-Public Use
  Company Number: US-ROCHE-1175048

PATIENT
  Age: 18 Year
  Sex: Female

DRUGS (5)
  1. GANCICLOVIR [Suspect]
     Indication: CYTOMEGALOVIRUS INFECTION
     Route: 042
  2. GANCICLOVIR [Suspect]
     Route: 042
  3. FOSCARNET [Concomitant]
     Route: 065
  4. CIDOFOVIR [Concomitant]
     Route: 065
  5. RIBAVIRIN [Concomitant]
     Route: 050

REACTIONS (1)
  - Drug resistance [Unknown]
